FAERS Safety Report 24230716 (Version 1)
Quarter: 2024Q3

REPORT INFORMATION
  Report Type: Spontaneous
  Country: MK (occurrence: MK)
  Receive Date: 20240821
  Receipt Date: 20240821
  Transmission Date: 20241017
  Serious: Yes (Other)
  Sender: ROCHE
  Company Number: MK-ROCHE-10000060680

PATIENT
  Age: 8 Year
  Sex: Female
  Weight: 12 kg

DRUGS (5)
  1. ACTEMRA [Suspect]
     Active Substance: TOCILIZUMAB
     Indication: Still^s disease
     Route: 058
     Dates: start: 20240709, end: 20240816
  2. METHYLPREDNISOLONE [Concomitant]
     Active Substance: METHYLPREDNISOLONE
     Dosage: ONCE
     Route: 042
     Dates: start: 20240816, end: 20240816
  3. CETIRIZINE [Concomitant]
     Active Substance: CETIRIZINE HYDROCHLORIDE
     Route: 048
     Dates: start: 20240816, end: 20240816
  4. CHLOROPYRAMINE [Concomitant]
     Active Substance: CHLOROPYRAMINE
  5. DEXAMETAZON BP [DEXAMETHASONE] [Concomitant]

REACTIONS (5)
  - Pyrexia [Recovered/Resolved]
  - Urticaria [Recovered/Resolved]
  - Hypotonia [Recovered/Resolved]
  - Rash [Recovered/Resolved]
  - Hypoxia [Recovered/Resolved]

NARRATIVE: CASE EVENT DATE: 20240816
